FAERS Safety Report 8301080 (Version 2)
Quarter: 2012Q4

REPORT INFORMATION
  Report Type: 
  Country: US (occurrence: US)
  Receive Date: 20111219
  Receipt Date: 20121026
  Transmission Date: 20130627
  Serious: No
  Sender: FDA-Public Use
  Company Number: US-ASTRAZENECA-2011SE33735

PATIENT
  Age: 69 Year
  Sex: Female

DRUGS (5)
  1. CRESTOR [Suspect]
     Route: 048
  2. CRESTOR [Suspect]
     Route: 048
  3. CRESTOR [Suspect]
     Dosage: GENERIC FORM
     Route: 048
  4. PRAVACHOL [Concomitant]
  5. HORMONES [Concomitant]

REACTIONS (9)
  - Nervousness [Unknown]
  - Mycotic allergy [Unknown]
  - Sleep disorder due to a general medical condition [Unknown]
  - Hot flush [Unknown]
  - Stress [Unknown]
  - Blood cholesterol increased [Unknown]
  - Pain in extremity [Unknown]
  - Wrong drug administered [Unknown]
  - Drug ineffective [Unknown]
